FAERS Safety Report 8950943 (Version 2)
Quarter: 2013Q1

REPORT INFORMATION
  Report Type: Spontaneous
  Country: PL (occurrence: None)
  Receive Date: 20121128
  Receipt Date: 20121231
  Transmission Date: 20140127
  Serious: Yes (Life-Threatening, Hospitalization)
  Sender: FDA-Public Use
  Company Number: 2012294640

PATIENT
  Age: 79 Year
  Sex: Female

DRUGS (8)
  1. FRAGMIN (DALTEPARIN SODIUM) SOLUTION FOR INJECTION [Suspect]
     Indication: THROMBOSIS PROPHYLAXIS
     Route: 058
     Dates: start: 20121111, end: 20121120
  2. PERFALGAN [Concomitant]
  3. CINNARIZINE (CINNARIZINE) [Concomitant]
  4. CONVULEX  (VALPROATE SODIUM) [Concomitant]
  5. METAZYDYNA (TRIMETAZIDINE HYDROCHLORIDE) [Concomitant]
  6. BISOCARD (BISOPROLOL) [Concomitant]
  7. BIOFUROKSYM (CEFUROXIME SODIUM) [Concomitant]
  8. ALPRAZOLAM (ALPRAZOLAM) [Concomitant]

REACTIONS (3)
  - Cerebral infarction [None]
  - Loss of consciousness [None]
  - General physical health deterioration [None]
